FAERS Safety Report 5022988-0 (Version None)
Quarter: 2006Q2

REPORT INFORMATION
  Report Type: 
  Country: None (occurrence: None)
  Receive Date: 20060426
  Receipt Date: 20060202
  Transmission Date: 20061013
  Serious: Yes (Other)
  Sender: FDA-Public Use
  Company Number: 2006017896

PATIENT
  Age: 77 Year
  Sex: Female
  Weight: 106.5953 kg

DRUGS (2)
  1. LYRICA [Suspect]
     Indication: ARTHRALGIA
     Dosage: (50 MG, UNKNOWN), ORAL
     Route: 048
     Dates: start: 20050131
  2. PERCOCET [Suspect]
     Indication: ILL-DEFINED DISORDER
     Dates: end: 20060201

REACTIONS (2)
  - ABDOMINAL PAIN [None]
  - DRUG INTERACTION [None]
